FAERS Safety Report 18622209 (Version 4)
Quarter: 2021Q2

REPORT INFORMATION
  Report Type: Report from Study
  Country: US (occurrence: US)
  Receive Date: 20201216
  Receipt Date: 20210430
  Transmission Date: 20210717
  Serious: Yes (Hospitalization, Other)
  Sender: FDA-Public Use
  Company Number: US-TAKEDA-US202017584

PATIENT
  Age: 61 Year
  Sex: Male

DRUGS (16)
  1. TEDUGLUTIDE [Suspect]
     Active Substance: TEDUGLUTIDE
     Indication: SHORT-BOWEL SYNDROME
     Dosage: 3.29 MILLIGRAM, QD
     Route: 058
     Dates: start: 20200415
  2. TEDUGLUTIDE [Suspect]
     Active Substance: TEDUGLUTIDE
     Dosage: 0.329 UNK
     Route: 058
     Dates: start: 20200424
  3. TEDUGLUTIDE [Suspect]
     Active Substance: TEDUGLUTIDE
     Indication: PERFORATION BILE DUCT
     Dosage: 3.75 MILLIGRAM, QD
     Route: 058
     Dates: start: 20200415
  4. TEDUGLUTIDE [Suspect]
     Active Substance: TEDUGLUTIDE
     Indication: PERFORATION BILE DUCT
     Dosage: 3.75 MILLIGRAM, QD
     Route: 058
     Dates: start: 20200415
  5. TEDUGLUTIDE [Suspect]
     Active Substance: TEDUGLUTIDE
     Dosage: 0.329 UNK
     Route: 058
     Dates: start: 20200424
  6. TEDUGLUTIDE [Suspect]
     Active Substance: TEDUGLUTIDE
     Indication: SHORT-BOWEL SYNDROME
     Dosage: 3.29 MILLIGRAM, QD
     Route: 058
     Dates: start: 20200415
  7. TEDUGLUTIDE [Suspect]
     Active Substance: TEDUGLUTIDE
     Indication: ILEOSTOMY
     Dosage: 3.29 MILLIGRAM, QD
     Route: 058
     Dates: start: 20200416
  8. TEDUGLUTIDE [Suspect]
     Active Substance: TEDUGLUTIDE
     Indication: ILEOSTOMY
     Dosage: 3.29 MILLIGRAM, QD
     Route: 058
     Dates: start: 20200416
  9. TEDUGLUTIDE [Suspect]
     Active Substance: TEDUGLUTIDE
     Dosage: 0.329 UNK
     Route: 058
     Dates: start: 20200424
  10. TEDUGLUTIDE [Suspect]
     Active Substance: TEDUGLUTIDE
     Indication: SHORT-BOWEL SYNDROME
     Dosage: 3.29 MILLIGRAM, QD
     Route: 058
     Dates: start: 20200415
  11. TEDUGLUTIDE [Suspect]
     Active Substance: TEDUGLUTIDE
     Indication: ILEOSTOMY
     Dosage: 3.29 MILLIGRAM, QD
     Route: 058
     Dates: start: 20200416
  12. TEDUGLUTIDE [Suspect]
     Active Substance: TEDUGLUTIDE
     Indication: PERFORATION BILE DUCT
     Dosage: 3.75 MILLIGRAM, QD
     Route: 058
     Dates: start: 20200415
  13. TEDUGLUTIDE [Suspect]
     Active Substance: TEDUGLUTIDE
     Indication: SHORT-BOWEL SYNDROME
     Dosage: 3.29 MILLIGRAM, QD
     Route: 058
     Dates: start: 20200415
  14. TEDUGLUTIDE [Suspect]
     Active Substance: TEDUGLUTIDE
     Indication: ILEOSTOMY
     Dosage: 3.29 MILLIGRAM, QD
     Route: 058
     Dates: start: 20200416
  15. TEDUGLUTIDE [Suspect]
     Active Substance: TEDUGLUTIDE
     Indication: PERFORATION BILE DUCT
     Dosage: 3.75 MILLIGRAM, QD
     Route: 058
     Dates: start: 20200415
  16. TEDUGLUTIDE [Suspect]
     Active Substance: TEDUGLUTIDE
     Dosage: 0.329 UNK
     Route: 058
     Dates: start: 20200424

REACTIONS (8)
  - Emergency care [Unknown]
  - Inability to afford medication [Not Recovered/Not Resolved]
  - Complication associated with device [Unknown]
  - Rash [Unknown]
  - Infusion site pustule [Unknown]
  - Product dose omission issue [Unknown]
  - Injection site dryness [Unknown]
  - Injection site rash [Unknown]

NARRATIVE: CASE EVENT DATE: 20200521
